FAERS Safety Report 11156103 (Version 3)
Quarter: 2015Q3

REPORT INFORMATION
  Report Type: Spontaneous
  Country: IT (occurrence: IT)
  Receive Date: 20150602
  Receipt Date: 20150702
  Transmission Date: 20151125
  Serious: Yes (Hospitalization)
  Sender: FDA-Public Use
  Company Number: IT-ASTRAZENECA-2015SE53015

PATIENT
  Age: 32875 Day
  Sex: Male

DRUGS (10)
  1. SEROQUEL [Suspect]
     Active Substance: QUETIAPINE FUMARATE
     Indication: SENILE PSYCHOSIS
     Route: 048
     Dates: start: 20150508, end: 20150508
  2. AMOXICILLIN. [Concomitant]
     Active Substance: AMOXICILLIN
     Indication: RESPIRATORY TRACT INFECTION
     Route: 048
     Dates: start: 20150503, end: 20150506
  3. TALOFEN [Concomitant]
     Active Substance: PROMAZINE HYDROCHLORIDE
     Indication: AGITATION
     Dosage: 4 G/100 ML, 10 GTT
     Route: 048
  4. TRITTICO [Suspect]
     Active Substance: TRAZODONE HYDROCHLORIDE
     Indication: SENILE PSYCHOSIS
     Dosage: 60 MG/ML, 100 MG DAILY
     Route: 048
     Dates: start: 20150226, end: 20150507
  5. BISOPROLOL [Concomitant]
     Active Substance: BISOPROLOL
     Indication: HYPERTENSION
     Route: 048
  6. KALEIDON [Concomitant]
     Route: 048
  7. CLOZAPINA CHIESI [Suspect]
     Active Substance: CLOZAPINE
     Indication: SENILE PSYCHOSIS
     Route: 048
     Dates: end: 20150507
  8. RANITIDINE [Concomitant]
     Active Substance: RANITIDINE\RANITIDINE HYDROCHLORIDE
     Route: 048
  9. DUOVENT [Concomitant]
     Active Substance: FENOTEROL HYDROBROMIDE
     Indication: BRONCHIAL DISORDER
     Dosage: 0.5 MG/4 ML + 1.25 MG/4 ML NEBULISER SOLUTION
     Dates: start: 20150503, end: 20150521
  10. COUMADIN [Concomitant]
     Active Substance: WARFARIN SODIUM
     Indication: ATRIAL FIBRILLATION
     Route: 048

REACTIONS (4)
  - Off label use [Unknown]
  - Dysphagia [Recovered/Resolved]
  - Condition aggravated [Recovered/Resolved]
  - Sopor [Recovered/Resolved]

NARRATIVE: CASE EVENT DATE: 20150506
